FAERS Safety Report 24727199 (Version 1)
Quarter: 2024Q4

REPORT INFORMATION
  Report Type: Spontaneous
  Country: GB (occurrence: GB)
  Receive Date: 20241212
  Receipt Date: 20241212
  Transmission Date: 20250114
  Serious: Yes (Hospitalization)
  Sender: AMGEN
  Company Number: GB-Vifor (International) Inc.-VIT-2024-05777

PATIENT
  Age: 75 Year
  Sex: Male
  Weight: 98.4 kg

DRUGS (9)
  1. TAVNEOS [Suspect]
     Active Substance: AVACOPAN
     Indication: Anti-neutrophil cytoplasmic antibody positive vasculitis
     Dosage: TWICE DAILY (BD)
     Route: 048
     Dates: start: 20230920
  2. PREDNISOLONE [Concomitant]
     Active Substance: PREDNISOLONE
     Indication: Anti-neutrophil cytoplasmic antibody positive vasculitis
     Dosage: 30,MG,QD
     Route: 048
     Dates: start: 20230919, end: 20230927
  3. PREDNISOLONE [Concomitant]
     Active Substance: PREDNISOLONE
     Dosage: COMPLETION OF PLANNED COURSE
     Route: 065
     Dates: start: 20230928, end: 20231004
  4. PREDNISOLONE [Concomitant]
     Active Substance: PREDNISOLONE
     Dosage: WEANING DOSE
     Route: 065
     Dates: start: 20240318, end: 20240504
  5. PREDNISOLONE [Concomitant]
     Active Substance: PREDNISOLONE
     Dosage: 35,MG,QD
     Route: 065
     Dates: start: 20240504
  6. CYCLOPHOSPHAMIDE [Concomitant]
     Active Substance: CYCLOPHOSPHAMIDE
     Indication: Anti-neutrophil cytoplasmic antibody positive vasculitis
     Dosage: EVERY 2-3 WEEKS (6 DOSES TOTAL), COMPLETION OF PLANNED COURSE
     Route: 042
     Dates: start: 20230920, end: 20240118
  7. BISOPROLOL [Concomitant]
     Active Substance: BISOPROLOL
     Indication: Cardiac failure
     Dosage: 1.25,MG,QD
     Route: 048
  8. OMEPRAZOLE [Concomitant]
     Active Substance: OMEPRAZOLE
     Indication: Gastrointestinal disorder prophylaxis
     Dosage: CHANGE TO LANSOPRAZOLE
     Route: 048
     Dates: start: 20230920, end: 20240325
  9. AZATHIOPRINE [Concomitant]
     Active Substance: AZATHIOPRINE
     Indication: Anti-neutrophil cytoplasmic antibody positive vasculitis
     Dosage: UNK,UNK,QD
     Route: 048
     Dates: end: 20240318

REACTIONS (1)
  - Atrioventricular block complete [Recovered/Resolved]

NARRATIVE: CASE EVENT DATE: 20231012
